FAERS Safety Report 8826933 (Version 1)
Quarter: 2012Q4

REPORT INFORMATION
  Report Type: 
  Country: US (occurrence: US)
  Receive Date: 20121008
  Receipt Date: 20121008
  Transmission Date: 20130627
  Serious: No
  Sender: FDA-Public Use
  Company Number: US-009507513-1210USA002161

PATIENT

DRUGS (1)
  1. AZASITE [Suspect]
     Dosage: one drop to both eyes,qd
     Route: 047
     Dates: start: 20120925

REACTIONS (3)
  - Drug prescribing error [Unknown]
  - Product packaging quantity issue [Unknown]
  - No adverse event [Unknown]
